FAERS Safety Report 7824375-6 (Version None)
Quarter: 2011Q4

REPORT INFORMATION
  Report Type: 
  Country: None (occurrence: None)
  Receive Date: 20111014
  Receipt Date: 20111012
  Transmission Date: 20120403
  Serious: Yes (Other)
  Sender: FDA-Public Use
  Company Number: 201111089

PATIENT
  Age: 33 Year
  Sex: Male

DRUGS (1)
  1. BACLOFEN [Suspect]
     Indication: MUSCLE SPASTICITY
     Dosage: MCG, DAILY, INTRATHECAL

REACTIONS (5)
  - DEVICE DAMAGE [None]
  - IMPLANT SITE EFFUSION [None]
  - BACTERIAL INFECTION [None]
  - INTRACRANIAL HYPOTENSION [None]
  - ABDOMINAL DISTENSION [None]
